FAERS Safety Report 19416954 (Version 1)
Quarter: 2021Q2

REPORT INFORMATION
  Report Type: Spontaneous
  Country: US (occurrence: US)
  Receive Date: 20210614
  Receipt Date: 20210614
  Transmission Date: 20210717
  Serious: Yes (Other)
  Sender: FDA-Public Use
  Company Number: NVSC2021US130978

PATIENT
  Age: 63 Year
  Sex: Male

DRUGS (2)
  1. RANITIDINE. [Suspect]
     Active Substance: RANITIDINE
     Indication: INTESTINAL ULCER
     Dosage: 150 MG, QW4
     Route: 065
     Dates: end: 202002
  2. RANITIDINE. [Suspect]
     Active Substance: RANITIDINE
     Indication: INTESTINAL ULCER
     Dosage: 150 MG, QW4
     Route: 065
     Dates: end: 202002

REACTIONS (2)
  - Inappropriate schedule of product administration [Unknown]
  - Prostate cancer [Unknown]

NARRATIVE: CASE EVENT DATE: 20000301
